FAERS Safety Report 6524160-1 (Version None)
Quarter: 2009Q4

REPORT INFORMATION
  Report Type: 
  Country: None (occurrence: None)
  Receive Date: 20091231
  Receipt Date: 20091221
  Transmission Date: 20100525
  Serious: Yes (Hospitalization)
  Sender: FDA-Public Use
  Company Number: US-WATSON-2009-10884

PATIENT
  Age: 71 Year
  Sex: Male

DRUGS (1)
  1. ANDRODERM [Suspect]
     Indication: BLOOD TESTOSTERONE DECREASED
     Dosage: 2.5 MG, DAILY
     Route: 062
     Dates: start: 20091211

REACTIONS (3)
  - HOT FLUSH [None]
  - NIGHT SWEATS [None]
  - SMALL INTESTINAL OBSTRUCTION [None]
